FAERS Safety Report 4897016-8 (Version None)
Quarter: 2006Q1

REPORT INFORMATION
  Report Type: 
  Country: None (occurrence: None)
  Receive Date: 20060127
  Receipt Date: 20060113
  Transmission Date: 20060701
  Serious: Yes (Life-Threatening, Hospitalization, Other)
  Sender: FDA-Public Use
  Company Number: GB200511000182

PATIENT
  Age: 34 Year
  Sex: Male
  Weight: 76.2 kg

DRUGS (3)
  1. ZYPREXA [Suspect]
     Dosage: 10 MG, 2/D, UNK
     Route: 065
  2. MIRTAZAPINE [Concomitant]
  3. OMEPRAZOLE [Concomitant]

REACTIONS (14)
  - AGITATION [None]
  - ALCOHOLISM [None]
  - CONFUSIONAL STATE [None]
  - DIABETES INSIPIDUS [None]
  - DRUG ABUSER [None]
  - INTENTIONAL SELF-INJURY [None]
  - IRRITABILITY [None]
  - LOSS OF CONSCIOUSNESS [None]
  - MEMORY IMPAIRMENT [None]
  - MULTIPLE DRUG OVERDOSE INTENTIONAL [None]
  - PARANOIA [None]
  - PRESCRIBED OVERDOSE [None]
  - PSYCHOTIC DISORDER [None]
  - SUICIDE ATTEMPT [None]
